FAERS Safety Report 20144788 (Version 1)
Quarter: 2021Q4

REPORT INFORMATION
  Report Type: Spontaneous
  Country: JP (occurrence: JP)
  Receive Date: 20211203
  Receipt Date: 20211203
  Transmission Date: 20220303
  Serious: Yes (Other)
  Sender: FDA-Public Use
  Company Number: ALC2021JP006370

PATIENT

DRUGS (1)
  1. BSS PLUS [Suspect]
     Active Substance: CALCIUM CHLORIDE\DEXTROSE\MAGNESIUM CHLORIDE\OXIGLUTATIONE\POTASSIUM CHLORIDE\SODIUM BICARBONATE\SOD
     Indication: Product used for unknown indication
     Dosage: UNK
     Route: 065

REACTIONS (6)
  - Endophthalmitis [Unknown]
  - Corneal disorder [Unknown]
  - Inflammation [Unknown]
  - Product contamination physical [Recovered/Resolved]
  - Product quality issue [Unknown]
  - Corneal oedema [Unknown]

NARRATIVE: CASE EVENT DATE: 20211121
